FAERS Safety Report 5322710-4 (Version None)
Quarter: 2007Q2

REPORT INFORMATION
  Report Type: 
  Country: None (occurrence: None)
  Receive Date: 20070511
  Receipt Date: 20070501
  Transmission Date: 20071010
  Serious: Yes (Hospitalization)
  Sender: FDA-Public Use
  Company Number: US-GENENTECH-240865

PATIENT
  Sex: Female
  Weight: 68 kg

DRUGS (7)
  1. BEVACIZUMAB [Suspect]
     Indication: INFLAMMATORY CARCINOMA OF THE BREAST
     Dosage: 10 MG/KG, Q2W
     Route: 042
     Dates: start: 20061226, end: 20070201
  2. FLUOROURACIL [Concomitant]
     Indication: DRUG USE FOR UNKNOWN INDICATION
     Dosage: 500 MG/M2, UNK
     Route: 042
     Dates: start: 20060804, end: 20061006
  3. EPIRUBICIN [Concomitant]
     Indication: DRUG USE FOR UNKNOWN INDICATION
     Dosage: 100 MG/M2, UNK
     Route: 042
  4. CYTOXAN [Concomitant]
     Indication: DRUG USE FOR UNKNOWN INDICATION
     Dosage: 500 MG/M2, UNK
     Route: 042
  5. TAXOL [Concomitant]
     Indication: DRUG USE FOR UNKNOWN INDICATION
     Dosage: 80 MG/M2, UNK
     Route: 042
     Dates: start: 20061027, end: 20061214
  6. GEMZAR [Concomitant]
     Indication: DRUG USE FOR UNKNOWN INDICATION
     Dosage: 800 MG/M2, UNK
     Route: 042
     Dates: start: 20061226, end: 20070110
  7. CARBOPLATIN [Concomitant]
     Indication: DRUG USE FOR UNKNOWN INDICATION
     Dosage: 300 MG, UNK
     Route: 042
     Dates: start: 20061226, end: 20070110

REACTIONS (3)
  - DIPLOPIA [None]
  - HEADACHE [None]
  - PAPILLOEDEMA [None]
